FAERS Safety Report 4389570-X (Version None)
Quarter: 2004Q2

REPORT INFORMATION
  Report Type: 
  Country: None (occurrence: None)
  Receive Date: 20040629
  Receipt Date: 20040315
  Transmission Date: 20050107
  Serious: Yes (Other)
  Sender: FDA-Public Use
  Company Number: US-JNJFOC-20040303524

PATIENT
  Age: 39 Year
  Sex: Female

DRUGS (11)
  1. DURAGESIC [Suspect]
     Indication: PAIN
     Dosage: SEE IMAGE
     Route: 062
     Dates: start: 20040117, end: 20040310
  2. DURAGESIC [Suspect]
     Indication: PAIN
     Dosage: SEE IMAGE
     Route: 062
     Dates: start: 20040310, end: 20040312
  3. DURAGESIC [Suspect]
     Indication: PAIN
     Dosage: SEE IMAGE
     Route: 062
     Dates: start: 20040314
  4. BEXTRA (BUCINDOLOL HYDROCHLORIDE) TABLETS [Concomitant]
  5. FLEXERIL (CYCLOBENZAPRINE HYDROCHLORIDE) TABLETS [Concomitant]
  6. PREMARIN [Concomitant]
  7. PROPRANOLOL (PROPRANOLOL) TABLETS [Concomitant]
  8. NEURONTIN (GABAPENTIN) TABLETS [Concomitant]
  9. ATIVAN [Concomitant]
  10. CARBAMAZEPINE (CARBAMAZEPINE) TABLETS [Concomitant]
  11. TRAZADONE (TRAZODONE) TABLETS [Concomitant]

REACTIONS (6)
  - DIZZINESS [None]
  - DYSPNOEA [None]
  - ORTHOSTATIC HYPOTENSION [None]
  - PARAESTHESIA [None]
  - TREMOR [None]
  - VOMITING [None]
